FAERS Safety Report 8210357-1 (Version None)
Quarter: 2012Q1

REPORT INFORMATION
  Report Type: 
  Country: None (occurrence: None)
  Receive Date: 20120314
  Receipt Date: 20110217
  Transmission Date: 20120608
  Serious: No
  Sender: FDA-Public Use
  Company Number: US-ASTRAZENECA-2011SE09330

PATIENT
  Age: 51 Year
  Sex: Female
  Weight: 79.4 kg

DRUGS (1)
  1. METOPROLOL SUCCINATE [Suspect]
     Indication: HYPERTENSION
     Route: 048
     Dates: start: 20080101

REACTIONS (3)
  - WEIGHT INCREASED [None]
  - BLOOD PRESSURE INADEQUATELY CONTROLLED [None]
  - ABDOMINAL DISCOMFORT [None]
